FAERS Safety Report 6967684-5 (Version None)
Quarter: 2010Q3

REPORT INFORMATION
  Report Type: 
  Country: None (occurrence: None)
  Receive Date: 20100907
  Receipt Date: 20100827
  Transmission Date: 20110219
  Serious: Yes (Death, Other)
  Sender: FDA-Public Use
  Company Number: US-PFIZER INC-2010005995

PATIENT
  Sex: Male

DRUGS (3)
  1. CHANTIX [Suspect]
     Indication: SMOKING CESSATION THERAPY
     Dosage: 0.5/1.0 MG UNK
     Route: 048
     Dates: start: 20070701, end: 20080108
  2. LORTAB [Concomitant]
     Indication: BACK PAIN
     Dosage: UNK
     Dates: start: 19880101, end: 20080101
  3. LORTAB [Concomitant]
     Indication: INJURY

REACTIONS (3)
  - ANXIETY [None]
  - COMPLETED SUICIDE [None]
  - DEPRESSION [None]
